FAERS Safety Report 8111031-2 (Version None)
Quarter: 2012Q1

REPORT INFORMATION
  Report Type: 
  Country: None (occurrence: None)
  Receive Date: 20120203
  Receipt Date: 20110301
  Transmission Date: 20120608
  Serious: Yes (Hospitalization, Other)
  Sender: FDA-Public Use
  Company Number: US-GLAXOSMITHKLINE-A0916119A

PATIENT
  Age: 15 Year
  Sex: Female

DRUGS (3)
  1. ADDERALL 5 [Concomitant]
  2. GEODON [Concomitant]
  3. LAMICTAL [Suspect]
     Indication: BIPOLAR DISORDER
     Dosage: 150MG PER DAY
     Route: 048

REACTIONS (3)
  - HEADACHE [None]
  - RASH [None]
  - VOMITING [None]
